FAERS Safety Report 12633988 (Version 1)
Quarter: 2016Q3

REPORT INFORMATION
  Report Type: Spontaneous
  Country: AE (occurrence: None)
  Receive Date: 20160808
  Receipt Date: 20160808
  Transmission Date: 20161109
  Serious: Yes (Life-Threatening, Hospitalization)
  Sender: FDA-Public Use
  Company Number: None

PATIENT
  Age: 34 Year
  Sex: Female
  Weight: 70 kg

DRUGS (1)
  1. MAXIGESIC, PARACETAMOL 500MG+ IBUPROFEN 150MG [Suspect]
     Active Substance: ACETAMINOPHEN\HYDROCODONE BITARTRATE\IBUPROFEN
     Indication: HEADACHE
     Route: 048

REACTIONS (2)
  - Angioedema [None]
  - Obstructive airways disorder [None]

NARRATIVE: CASE EVENT DATE: 20160804
